FAERS Safety Report 8417433-9 (Version None)
Quarter: 2012Q2

REPORT INFORMATION
  Report Type: 
  Country: None (occurrence: None)
  Receive Date: 20120606
  Receipt Date: 20120531
  Transmission Date: 20120825
  Serious: Yes (Other)
  Sender: FDA-Public Use
  Company Number: US-JNJFOC-20120601117

PATIENT
  Sex: Female
  Weight: 58.97 kg

DRUGS (16)
  1. FENTANYL-100 [Suspect]
     Indication: BACK PAIN
     Route: 062
     Dates: start: 20070101, end: 20090101
  2. NASONEX [Concomitant]
     Indication: SINUSITIS
     Route: 045
     Dates: start: 19960101
  3. FLEXERIL [Suspect]
     Indication: MUSCLE SPASMS
     Route: 048
     Dates: start: 20040101, end: 20111001
  4. KLONOPIN [Concomitant]
     Indication: EPILEPSY
     Route: 048
     Dates: start: 19820101
  5. FENTANYL-100 [Suspect]
     Route: 062
     Dates: start: 20090101, end: 20120101
  6. PAXIL [Suspect]
     Indication: DEPRESSION
     Route: 048
     Dates: start: 19930101, end: 20120201
  7. LORTAB [Concomitant]
     Indication: BREAKTHROUGH PAIN
     Dosage: 10-5MG/4 TIMES DAILY AS NEEDED
     Route: 048
     Dates: start: 19910101
  8. SYNTHROID [Concomitant]
     Indication: HYPOTHYROIDISM
     Route: 048
     Dates: start: 19810101
  9. NEURONTIN [Concomitant]
     Indication: NEURALGIA
     Route: 048
     Dates: start: 20040101
  10. FENTANYL-100 [Suspect]
     Route: 062
     Dates: start: 20120101
  11. MAXALT [Concomitant]
     Indication: MIGRAINE
     Dosage: AS NEEDED
     Route: 048
  12. CYMBALTA [Suspect]
     Indication: DEPRESSION
     Route: 048
     Dates: start: 20120201, end: 20120301
  13. ALBUTEROL [Concomitant]
     Indication: ASTHMA
     Dosage: AS NEEDED
     Route: 055
     Dates: start: 19940101
  14. FENTANYL-100 [Suspect]
     Indication: NEUROPATHY PERIPHERAL
     Route: 062
     Dates: start: 20070101, end: 20090101
  15. FENTANYL-100 [Suspect]
     Route: 062
     Dates: start: 20090101, end: 20120101
  16. FENTANYL-100 [Suspect]
     Route: 062
     Dates: start: 20120101

REACTIONS (6)
  - DRUG INEFFECTIVE [None]
  - SOMNOLENCE [None]
  - DRUG ADMINISTERED AT INAPPROPRIATE SITE [None]
  - SWELLING [None]
  - INAPPROPRIATE SCHEDULE OF DRUG ADMINISTRATION [None]
  - MUSCLE SPASMS [None]
